FAERS Safety Report 9562613 (Version 2)
Quarter: 2013Q4

REPORT INFORMATION
  Report Type: Spontaneous
  Country: CN (occurrence: CN)
  Receive Date: 20130927
  Receipt Date: 20131008
  Transmission Date: 20140711
  Serious: Yes (Life-Threatening, Hospitalization)
  Sender: FDA-Public Use
  Company Number: CN-BRACCO-000708

PATIENT
  Age: 41 Year
  Sex: Male

DRUGS (1)
  1. MULTIHANCE [Suspect]
     Indication: LIVER SCAN
     Route: 042
     Dates: start: 20130925, end: 20130925

REACTIONS (3)
  - Blood pressure decreased [Recovered/Resolved]
  - Hypoaesthesia [Recovered/Resolved]
  - Hyperhidrosis [Recovered/Resolved]
